FAERS Safety Report 15769575 (Version 1)
Quarter: 2018Q4

REPORT INFORMATION
  Report Type: Spontaneous
  Country: GB (occurrence: GB)
  Receive Date: 20181228
  Receipt Date: 20181228
  Transmission Date: 20190205
  Serious: Yes (Hospitalization)
  Sender: FDA-Public Use
  Company Number: GB-ACCORD-098304

PATIENT
  Age: 92 Year
  Sex: Male

DRUGS (13)
  1. FUROSEMIDE. [Suspect]
     Active Substance: FUROSEMIDE
     Indication: PRODUCT USED FOR UNKNOWN INDICATION
  2. LEVOTHYROXINE. [Concomitant]
     Active Substance: LEVOTHYROXINE
  3. DONEPEZIL/DONEPEZIL HYDROCHLORIDE [Concomitant]
  4. OLANZAPINE. [Concomitant]
     Active Substance: OLANZAPINE
  5. ISOSORBIDE. [Concomitant]
     Active Substance: ISOSORBIDE
  6. RAMIPRIL. [Concomitant]
     Active Substance: RAMIPRIL
  7. PREGABALIN. [Concomitant]
     Active Substance: PREGABALIN
  8. MIRTAZAPINE. [Concomitant]
     Active Substance: MIRTAZAPINE
  9. ACETYLSALICYLIC ACID [Concomitant]
     Active Substance: ASPIRIN
  10. BISOPROLOL [Concomitant]
     Active Substance: BISOPROLOL
  11. CLOPIDOGREL [Concomitant]
     Active Substance: CLOPIDOGREL BISULFATE
  12. FOLIC ACID. [Concomitant]
     Active Substance: FOLIC ACID
  13. ADCAL-D3 [Concomitant]
     Active Substance: CALCIUM CARBONATE\CHOLECALCIFEROL
     Dosage: 750MG/200UNIT.

REACTIONS (1)
  - Acute kidney injury [Recovered/Resolved]
